FAERS Safety Report 9278875 (Version 1)
Quarter: 2013Q2

REPORT INFORMATION
  Report Type: Spontaneous
  Country: IT (occurrence: IT)
  Receive Date: 20130508
  Receipt Date: 20130508
  Transmission Date: 20140414
  Serious: Yes (Other)
  Sender: FDA-Public Use
  Company Number: PHHY2013IT043781

PATIENT
  Sex: Female

DRUGS (6)
  1. DELORAZEPAM [Suspect]
     Indication: INTENTIONAL SELF-INJURY
     Dosage: 40 ML, UNK
     Route: 048
     Dates: start: 20130401, end: 20130401
  2. VENLAFAXINE [Suspect]
     Indication: INTENTIONAL SELF-INJURY
     Dosage: 2100 MG, UNK
     Dates: start: 20130401, end: 20130401
  3. LEXOTAN [Suspect]
     Indication: INTENTIONAL SELF-INJURY
     Dosage: 27 MG, UNK
     Route: 048
     Dates: start: 20130401, end: 20130401
  4. ZOLOFT [Suspect]
     Indication: INTENTIONAL SELF-INJURY
     Dosage: 750 MG, UNK
     Route: 048
     Dates: start: 20130401, end: 20130401
  5. XANAX [Suspect]
     Indication: INTENTIONAL SELF-INJURY
     Dosage: 2.5 MG, UNK
     Route: 048
     Dates: start: 20130401, end: 20130401
  6. ENTACT [Suspect]
     Indication: INTENTIONAL SELF-INJURY
     Dosage: 15 ML, UNK
     Route: 048
     Dates: start: 20130401, end: 20130401

REACTIONS (5)
  - Facial bones fracture [Recovered/Resolved]
  - Drug abuse [Recovered/Resolved]
  - Mydriasis [Recovered/Resolved]
  - Dysarthria [Recovered/Resolved]
  - Sopor [Recovered/Resolved]
